FAERS Safety Report 9506450 (Version 2)
Quarter: 2013Q3

REPORT INFORMATION
  Report Type: Spontaneous
  Country: US (occurrence: US)
  Receive Date: 20130903
  Receipt Date: 20130903
  Transmission Date: 20140515
  Serious: Yes (Hospitalization, Other)
  Sender: FDA-Public Use
  Company Number: US-009507513-2011SP004878

PATIENT
  Sex: Female
  Weight: 86.18 kg

DRUGS (2)
  1. NUVARING [Suspect]
     Indication: CONTRACEPTION
     Dosage: 1 DF, QM
     Route: 067
     Dates: start: 200609, end: 200802
  2. NUVARING [Suspect]
     Dosage: 1 DF, QM
     Dates: start: 200805, end: 200902

REACTIONS (7)
  - Chest pain [Unknown]
  - Hypercoagulation [Recovering/Resolving]
  - Cervical dysplasia [Unknown]
  - Deep vein thrombosis [Not Recovered/Not Resolved]
  - Uterine leiomyoma [Unknown]
  - Mental disorder [Unknown]
  - Emotional disorder [Unknown]
